FAERS Safety Report 18732673 (Version 3)
Quarter: 2022Q3

REPORT INFORMATION
  Report Type: Spontaneous
  Country: US (occurrence: US)
  Receive Date: 20210112
  Receipt Date: 20220901
  Transmission Date: 20221026
  Serious: No
  Sender: FDA-Public Use
  Company Number: US-VERTEX PHARMACEUTICALS-2020-021544

PATIENT
  Sex: Female

DRUGS (39)
  1. TRIKAFTA [Interacting]
     Active Substance: ELEXACAFTOR\IVACAFTOR\TEZACAFTOR
     Indication: Cystic fibrosis
     Dosage: 2 TAB (ELEXA 100 MG/ TEZA 50 MG/ IVA 75 MG) AM, 1 TAB (IVA 50 MG) PM
     Route: 048
     Dates: start: 20191104
  2. SEROQUEL [Interacting]
     Active Substance: QUETIAPINE FUMARATE
     Indication: Depression
     Route: 065
  3. SEROQUEL [Interacting]
     Active Substance: QUETIAPINE FUMARATE
     Indication: Anxiety
  4. SEROQUEL [Interacting]
     Active Substance: QUETIAPINE FUMARATE
     Indication: Insomnia
  5. ALBUTEROL [Concomitant]
     Active Substance: ALBUTEROL
  6. AZELASTINE [Concomitant]
     Active Substance: AZELASTINE
  7. BACLOFEN [Concomitant]
     Active Substance: BACLOFEN
  8. BACTRIM [Concomitant]
     Active Substance: SULFAMETHOXAZOLE\TRIMETHOPRIM
  9. BENADRYL [Concomitant]
     Active Substance: DIPHENHYDRAMINE HYDROCHLORIDE
  10. BUDESONIDE [Concomitant]
     Active Substance: BUDESONIDE
  11. CAYSTON [Concomitant]
     Active Substance: AZTREONAM
  12. CITALOPRAM [Concomitant]
     Active Substance: CITALOPRAM HYDROBROMIDE
  13. FOLIC ACID [Concomitant]
     Active Substance: FOLIC ACID
  14. GABAPENTIN [Concomitant]
     Active Substance: GABAPENTIN
  15. KETOTIFEN [Concomitant]
     Active Substance: KETOTIFEN
  16. LINZESS [Concomitant]
     Active Substance: LINACLOTIDE
  17. MEROPENEM [Concomitant]
     Active Substance: MEROPENEM
  18. MIRALAX [Concomitant]
     Active Substance: POLYETHYLENE GLYCOL 3350
  19. MONTELUKAST [Concomitant]
     Active Substance: MONTELUKAST SODIUM
  20. GUAIFENESIN [Concomitant]
     Active Substance: GUAIFENESIN
  21. MOTRIN [Concomitant]
     Active Substance: IBUPROFEN
  22. MUCUS RELIEF [Concomitant]
     Active Substance: GUAIFENESIN
  23. SODIUM CHLORIDE [Concomitant]
     Active Substance: SODIUM CHLORIDE
  24. ZOFRAN [Concomitant]
     Active Substance: ONDANSETRON HYDROCHLORIDE
  25. OMEPRAZOLE [Concomitant]
     Active Substance: OMEPRAZOLE
  26. ZINC OXIDE [Concomitant]
     Active Substance: ZINC OXIDE
  27. SPIRIVA RESPIMAT [Concomitant]
     Active Substance: TIOTROPIUM BROMIDE
  28. SYMBICORT [Concomitant]
     Active Substance: BUDESONIDE\FORMOTEROL FUMARATE DIHYDRATE
  29. AZITHROMYCIN [Concomitant]
     Active Substance: AZITHROMYCIN
  30. TOBRAMYCIN [Concomitant]
     Active Substance: TOBRAMYCIN
  31. TYLENOL [Concomitant]
     Active Substance: ACETAMINOPHEN
  32. ZYRTEC [Concomitant]
     Active Substance: CETIRIZINE HYDROCHLORIDE
  33. ALBUTEROL [Concomitant]
     Active Substance: ALBUTEROL
  34. ZENPEP [Concomitant]
     Active Substance: PANCRELIPASE AMYLASE\PANCRELIPASE LIPASE\PANCRELIPASE PROTEASE
  35. AMITIZA [Concomitant]
     Active Substance: LUBIPROSTONE
  36. BUPROPION [Concomitant]
     Active Substance: BUPROPION
     Dosage: 100 MG
  37. DULOXETINE [Concomitant]
     Active Substance: DULOXETINE
     Dosage: 30 MG
  38. ALBUTEROL SULFATE [Concomitant]
     Active Substance: ALBUTEROL SULFATE
     Dosage: 18 GM (2 PUFFS)
  39. PULMOZYME [Concomitant]
     Active Substance: DORNASE ALFA
     Dosage: 1 MG/ML

REACTIONS (14)
  - Fatigue [Not Recovered/Not Resolved]
  - Weight increased [Not Recovered/Not Resolved]
  - Mental disorder [Recovering/Resolving]
  - Paranasal sinus inflammation [Not Recovered/Not Resolved]
  - Anxiety [Not Recovered/Not Resolved]
  - Depression [Not Recovered/Not Resolved]
  - Somnolence [Recovering/Resolving]
  - Lethargy [Recovering/Resolving]
  - Panic attack [Recovered/Resolved]
  - Hypertrichosis [Not Recovered/Not Resolved]
  - Drug interaction [Recovered/Resolved]
  - Acne [Not Recovered/Not Resolved]
  - Rash [Not Recovered/Not Resolved]
  - Dermatitis [Not Recovered/Not Resolved]

NARRATIVE: CASE EVENT DATE: 20190101
